FAERS Safety Report 15813990 (Version 4)
Quarter: 2019Q1

REPORT INFORMATION
  Report Type: Spontaneous
  Country: JP (occurrence: JP)
  Receive Date: 20190111
  Receipt Date: 20190318
  Transmission Date: 20190417
  Serious: Yes (Death, Hospitalization, Disabling, Other)
  Sender: FDA-Public Use
  Company Number: JP-ASTRAZENECA-2018SF38435

PATIENT
  Age: 27325 Day
  Sex: Male
  Weight: 59 kg

DRUGS (18)
  1. BEZAFIBRATE [Concomitant]
     Active Substance: BEZAFIBRATE
     Indication: DYSLIPIDAEMIA
     Route: 048
  2. TRAMADOL HYDROCHLORIDE. [Concomitant]
     Active Substance: TRAMADOL HYDROCHLORIDE
     Indication: CERVICAL RADICULOPATHY
     Dosage: EVERY DAY
     Route: 048
  3. ONGLYZA [Concomitant]
     Active Substance: SAXAGLIPTIN HYDROCHLORIDE
     Indication: DIABETES MELLITUS
     Route: 048
  4. ALLOID G [Concomitant]
     Active Substance: SODIUM ALGINATE
     Indication: RADIATION OESOPHAGITIS
     Route: 048
     Dates: start: 20180823, end: 20181023
  5. OPSO [Concomitant]
     Active Substance: MORPHINE HYDROCHLORIDE
     Indication: RADIATION OESOPHAGITIS
     Dosage: 5.0MG AS REQUIRED
     Route: 048
     Dates: start: 20180911, end: 20181023
  6. IMFINZI [Suspect]
     Active Substance: DURVALUMAB
     Indication: NON-SMALL CELL LUNG CANCER
     Route: 041
     Dates: start: 20181003, end: 20181003
  7. MAGNESIUM OXIDE. [Concomitant]
     Active Substance: MAGNESIUM OXIDE
     Indication: CONSTIPATION
     Route: 048
     Dates: start: 20180812
  8. AMLODIPINE BESILATE [Concomitant]
     Active Substance: AMLODIPINE BESYLATE
     Indication: HYPERTENSION
     Route: 048
  9. METFORMIN HYDROCHLORIDE. [Concomitant]
     Active Substance: METFORMIN HYDROCHLORIDE
     Indication: DIABETES MELLITUS
     Route: 048
  10. NEUROTROPIN [Concomitant]
     Active Substance: NEUROTROPIN
     Indication: CERVICAL RADICULOPATHY
     Route: 048
  11. SPIOLTO [Concomitant]
     Active Substance: OLODATEROL HYDROCHLORIDE\TIOTROPIUM BROMIDE MONOHYDRATE
     Indication: EMPHYSEMA
     Dosage: EVERY DAY
     Route: 055
     Dates: start: 20180912
  12. PONSTEL [Concomitant]
     Active Substance: MEFENAMIC ACID
     Indication: RADIATION OESOPHAGITIS
     Route: 048
     Dates: start: 20180823, end: 20181023
  13. NOVAMIN [Concomitant]
     Route: 048
     Dates: start: 20180914, end: 20180925
  14. OXYCONTIN [Concomitant]
     Active Substance: OXYCODONE HYDROCHLORIDE
     Indication: RADIATION OESOPHAGITIS
     Route: 048
     Dates: start: 20180920, end: 20181006
  15. RIVOTRIL [Concomitant]
     Active Substance: CLONAZEPAM
     Indication: CERVICAL RADICULOPATHY
     Route: 048
  16. METHYCOBAL [Concomitant]
     Active Substance: METHYLCOBALAMIN
     Indication: CERVICAL RADICULOPATHY
     Route: 048
  17. CALONAL [Concomitant]
     Active Substance: ACETAMINOPHEN
     Indication: RADIATION OESOPHAGITIS
     Route: 048
     Dates: start: 20180905, end: 20181023
  18. NOVAMIN [Concomitant]
     Route: 048
     Dates: end: 20181006

REACTIONS (6)
  - Interstitial lung disease [Recovered/Resolved with Sequelae]
  - Cardio-respiratory arrest [Fatal]
  - Radiation pneumonitis [Unknown]
  - Pulmonary hypertension [Recovering/Resolving]
  - Right ventricular failure [Recovering/Resolving]
  - Chronic respiratory failure [Unknown]

NARRATIVE: CASE EVENT DATE: 20181017
